FAERS Safety Report 23831965 (Version 2)
Quarter: 2024Q3

REPORT INFORMATION
  Report Type: Report from Study
  Country: CA (occurrence: CA)
  Receive Date: 20240508
  Receipt Date: 20240927
  Transmission Date: 20241016
  Serious: Yes (Hospitalization, Disabling)
  Sender: AKCEA THERAPEUTICS
  Company Number: CA-AKCEA THERAPEUTICS, INC.-2024IS004109

PATIENT

DRUGS (6)
  1. TEGSEDI [Suspect]
     Active Substance: INOTERSEN SODIUM
     Indication: Hereditary neuropathic amyloidosis
     Dosage: 284 MILLIGRAM, QW
     Route: 058
     Dates: start: 20190930, end: 202003
  2. RETINOL [Concomitant]
     Active Substance: RETINOL
     Indication: Product used for unknown indication
     Dosage: 10000 INTERNATIONAL UNIT
     Route: 048
     Dates: start: 20190930
  3. LYRICA [Concomitant]
     Active Substance: PREGABALIN
     Indication: Product used for unknown indication
     Dosage: 40 MILLIGRAM, QD
     Route: 048
  4. MELATONIN [Concomitant]
     Active Substance: MELATONIN
     Indication: Product used for unknown indication
     Dosage: UNK UNK, QD
     Route: 048
  5. VITAMIN B12 [Concomitant]
     Active Substance: CYANOCOBALAMIN
     Indication: Product used for unknown indication
     Dosage: UNK
     Route: 048
  6. ASPIRIN [Concomitant]
     Active Substance: ASPIRIN
     Indication: Product used for unknown indication
     Dosage: UNK
     Route: 065

REACTIONS (23)
  - Gastrointestinal ulcer haemorrhage [Recovered/Resolved]
  - Lip dry [Not Recovered/Not Resolved]
  - Lip blister [Not Recovered/Not Resolved]
  - Weight decreased [Not Recovered/Not Resolved]
  - General physical health deterioration [Not Recovered/Not Resolved]
  - Decubitus ulcer [Not Recovered/Not Resolved]
  - Dehydration [Not Recovered/Not Resolved]
  - Hypophagia [Unknown]
  - Duodenal ulcer [Recovered/Resolved]
  - Hepatic cyst [Not Recovered/Not Resolved]
  - Bladder hypertrophy [Not Recovered/Not Resolved]
  - Fatigue [Recovering/Resolving]
  - Renal failure [Unknown]
  - Hypotension [Recovering/Resolving]
  - Dysphagia [Not Recovered/Not Resolved]
  - Hypersomnia [Unknown]
  - Lethargy [Not Recovered/Not Resolved]
  - Oropharyngeal pain [Not Recovered/Not Resolved]
  - Bedridden [Unknown]
  - Extremity contracture [Not Recovered/Not Resolved]
  - Anaemia macrocytic [Not Recovered/Not Resolved]
  - Dyspnoea [Not Recovered/Not Resolved]
  - Decreased appetite [Not Recovered/Not Resolved]

NARRATIVE: CASE EVENT DATE: 20200201
